FAERS Safety Report 12594658 (Version 6)
Quarter: 2017Q3

REPORT INFORMATION
  Report Type: Report from Study
  Country: US (occurrence: US)
  Receive Date: 20160726
  Receipt Date: 20170809
  Transmission Date: 20171127
  Serious: Yes (Death, Hospitalization)
  Sender: FDA-Public Use
  Company Number: US-ACTELION-A-US2016-139539

PATIENT
  Age: 38 Year
  Sex: Female
  Weight: 97.51 kg

DRUGS (4)
  1. TRACLEER [Suspect]
     Active Substance: BOSENTAN
     Indication: PULMONARY HYPERTENSION
     Dosage: 125 MG, BID
     Route: 048
     Dates: start: 20160504
  2. TRACLEER [Suspect]
     Active Substance: BOSENTAN
     Dosage: UNK
     Route: 048
  3. XARELTO [Concomitant]
     Active Substance: RIVAROXABAN
  4. RIOCIGUAT [Concomitant]
     Active Substance: RIOCIGUAT

REACTIONS (8)
  - Hypotension [Fatal]
  - Gastrointestinal necrosis [Fatal]
  - Dyspnoea [Recovering/Resolving]
  - Fluid overload [Recovering/Resolving]
  - Loss of consciousness [Unknown]
  - Right ventricular failure [Recovering/Resolving]
  - Pulmonary thrombosis [Unknown]
  - Back pain [Unknown]

NARRATIVE: CASE EVENT DATE: 20170320
